FAERS Safety Report 18629425 (Version 3)
Quarter: 2022Q1

REPORT INFORMATION
  Report Type: Report from Study
  Country: JP (occurrence: JP)
  Receive Date: 20201217
  Receipt Date: 20220225
  Transmission Date: 20220423
  Serious: Yes (Other)
  Sender: FDA-Public Use
  Company Number: JP-002147023-NVSJ2020JP013109

PATIENT

DRUGS (8)
  1. RUXOLITINIB [Suspect]
     Active Substance: RUXOLITINIB
     Indication: Polycythaemia vera
     Dosage: 5 MG, BID
     Route: 048
     Dates: start: 20171206, end: 20180117
  2. RUXOLITINIB [Suspect]
     Active Substance: RUXOLITINIB
     Dosage: 10 MG, BID
     Route: 048
     Dates: start: 20180118, end: 20180418
  3. RUXOLITINIB [Suspect]
     Active Substance: RUXOLITINIB
     Dosage: 15 MG, BID
     Route: 048
     Dates: start: 20180419, end: 20180530
  4. RUXOLITINIB [Suspect]
     Active Substance: RUXOLITINIB
     Dosage: 20 MG, BID
     Route: 048
     Dates: start: 20180531, end: 20190702
  5. RUXOLITINIB [Suspect]
     Active Substance: RUXOLITINIB
     Dosage: 15 MG, BID
     Route: 048
     Dates: start: 20190703
  6. HYDREA [Concomitant]
     Active Substance: HYDROXYUREA
     Indication: Polycythaemia vera
     Dosage: 1500 MG
     Route: 048
     Dates: end: 20180417
  7. HYDREA [Concomitant]
     Active Substance: HYDROXYUREA
     Dosage: 1000 MG
     Route: 048
     Dates: start: 20180418
  8. ACYCLOVIR [Concomitant]
     Active Substance: ACYCLOVIR
     Indication: Opportunistic infection prophylaxis
     Dosage: 200 MG
     Route: 048
     Dates: start: 20180418

REACTIONS (2)
  - Myelosuppression [Recovering/Resolving]
  - Myelofibrosis [Not Recovered/Not Resolved]

NARRATIVE: CASE EVENT DATE: 20190703
